FAERS Safety Report 9121260 (Version 2)
Quarter: 2013Q1

REPORT INFORMATION
  Report Type: Spontaneous
  Country: JP (occurrence: JP)
  Receive Date: 20130225
  Receipt Date: 20130315
  Transmission Date: 20140127
  Serious: Yes (Other)
  Sender: FDA-Public Use
  Company Number: JP-ROCHE-1194320

PATIENT
  Age: 68 Year
  Sex: Female

DRUGS (2)
  1. HERCEPTIN [Suspect]
     Indication: BREAST CANCER METASTATIC
     Dosage: ADMINISTERING FOR UNCERTAIN DOSAGE, THREE YEARS, AND EIGHT MONTHS
     Route: 041
  2. PACLITAXEL [Concomitant]
     Indication: BREAST CANCER METASTATIC
     Dosage: DOSAGE IS UNCERTAIN
     Route: 041
     Dates: end: 2012

REACTIONS (3)
  - Alopecia [Unknown]
  - Dysgeusia [Unknown]
  - Parosmia [Unknown]
